FAERS Safety Report 9742641 (Version 1)
Quarter: 2013Q4

REPORT INFORMATION
  Report Type: Spontaneous
  Country: US (occurrence: US)
  Receive Date: 20131210
  Receipt Date: 20131210
  Transmission Date: 20140711
  Serious: No
  Sender: FDA-Public Use
  Company Number: US-GILEAD-2009-0025227

PATIENT
  Sex: Female

DRUGS (15)
  1. LETAIRIS [Suspect]
     Indication: PULMONARY ARTERIAL HYPERTENSION
     Route: 048
  2. LOHIST [Concomitant]
  3. COUMADIN [Concomitant]
  4. ZANTAC [Concomitant]
  5. TORSEMIDE [Concomitant]
  6. CRESTOR [Concomitant]
  7. POTASSIUM [Concomitant]
  8. DOXAZOSIN [Concomitant]
  9. CARVEDILOL [Concomitant]
  10. COLCHICINE [Concomitant]
  11. CLONIDINE [Concomitant]
  12. CAPTOPRIL [Concomitant]
  13. HECTOROL [Concomitant]
  14. PROPOXYPHENE [Concomitant]
  15. ALLOPURINOL [Concomitant]

REACTIONS (1)
  - Local swelling [Unknown]
